FAERS Safety Report 4338332-8 (Version None)
Quarter: 2004Q2

REPORT INFORMATION
  Report Type: 
  Country: None (occurrence: None)
  Receive Date: 20040407
  Receipt Date: 20040326
  Transmission Date: 20050107
  Serious: Yes (Hospitalization)
  Sender: FDA-Public Use
  Company Number: 02P-056-0205628-00

PATIENT
  Age: 41 Year
  Sex: Male
  Weight: 75 kg

DRUGS (5)
  1. KALETRA [Suspect]
     Indication: HIV INFECTION
  2. TRICOR [Suspect]
     Indication: DRUG USE FOR UNKNOWN INDICATION
     Dosage: 200 MG, 1 IN 1 D, PER ORAL
     Route: 048
     Dates: start: 20011204
  3. DIDANOSINE [Suspect]
     Indication: HIV INFECTION
     Dosage: 400 MG, 1 IN 1 D, PER ORAL
     Route: 048
  4. LAMIVUDINE [Suspect]
     Indication: HIV INFECTION
     Dosage: 150 MG, 1 IN 1 D, PER ORAL
     Route: 048
  5. VASERETIC [Suspect]
     Indication: DRUG USE FOR UNKNOWN INDICATION
     Dosage: 1 DOSAGE FORMS, PER ORAL
     Route: 048
     Dates: start: 20020709

REACTIONS (4)
  - DYSURIA [None]
  - NEPHROLITHIASIS [None]
  - REFUSAL OF TREATMENT BY PATIENT [None]
  - RENAL COLIC [None]
